FAERS Safety Report 7507942-9 (Version None)
Quarter: 2011Q2

REPORT INFORMATION
  Report Type: 
  Country: None (occurrence: None)
  Receive Date: 20110527
  Receipt Date: 20110513
  Transmission Date: 20111010
  Serious: Yes (Hospitalization)
  Sender: FDA-Public Use
  Company Number: US-JNJFOC-20110507039

PATIENT
  Sex: Female
  Weight: 77.11 kg

DRUGS (5)
  1. PREMARIN [Concomitant]
     Indication: HORMONE REPLACEMENT THERAPY
  2. PROZAC [Concomitant]
     Indication: DEPRESSION
     Route: 048
  3. XANAX [Concomitant]
     Indication: ANXIETY
     Route: 048
  4. LORTAB [Concomitant]
     Indication: PAIN
     Route: 048
  5. REMICADE [Suspect]
     Indication: RHEUMATOID ARTHRITIS
     Route: 042
     Dates: start: 20080101, end: 20090301

REACTIONS (1)
  - MALIGNANT MELANOMA STAGE IV [None]
